FAERS Safety Report 9088979 (Version 1)
Quarter: 2013Q1

REPORT INFORMATION
  Report Type: Spontaneous
  Country: CO (occurrence: CO)
  Receive Date: 20130131
  Receipt Date: 20130131
  Transmission Date: 20140127
  Serious: Yes (Hospitalization)
  Sender: FDA-Public Use
  Company Number: CO-PFIZER INC-2013032297

PATIENT
  Age: 86 Year
  Sex: Female

DRUGS (1)
  1. DETRUSITOL SR [Suspect]
     Indication: BLADDER DISORDER
     Dosage: 4 MG, 1X/DAY
     Route: 048
     Dates: start: 2011

REACTIONS (2)
  - Bronchitis [Recovered/Resolved]
  - Pneumonia [Recovered/Resolved]
